FAERS Safety Report 21391118 (Version 6)
Quarter: 2022Q4

REPORT INFORMATION
  Report Type: Report from Study
  Country: US (occurrence: US)
  Receive Date: 20220929
  Receipt Date: 20221201
  Transmission Date: 20230113
  Serious: Yes (Other)
  Sender: FDA-Public Use
  Company Number: US-GILEAD-2022-0596805

PATIENT
  Sex: Male

DRUGS (4)
  1. AMBRISENTAN [Suspect]
     Active Substance: AMBRISENTAN
     Indication: Pulmonary arterial hypertension
     Dosage: 10 MG, QD
     Route: 048
     Dates: start: 20190411
  2. OXYGEN [Suspect]
     Active Substance: OXYGEN
     Indication: Product used for unknown indication
     Dosage: UNK
     Route: 065
  3. ADEMPAS [Concomitant]
     Active Substance: RIOCIGUAT
     Indication: Product used for unknown indication
     Dosage: 0.5 MG
     Route: 065
  4. UPTRAVI [Concomitant]
     Active Substance: SELEXIPAG

REACTIONS (24)
  - Loss of consciousness [Unknown]
  - Seizure [Unknown]
  - Epistaxis [Unknown]
  - Testicular disorder [Unknown]
  - Hypertension [Unknown]
  - Dyspnoea exertional [Unknown]
  - Swelling face [Unknown]
  - Peripheral swelling [Unknown]
  - Extrasystoles [Unknown]
  - Heart rate increased [Unknown]
  - Dizziness [Unknown]
  - Productive cough [Unknown]
  - Vomiting [Unknown]
  - Lethargy [Unknown]
  - Confusional state [Unknown]
  - Cold sweat [Unknown]
  - Pallor [Unknown]
  - Cough [Recovering/Resolving]
  - Diarrhoea [Unknown]
  - Pain [Unknown]
  - Fall [Unknown]
  - Fatigue [Unknown]
  - Breath sounds abnormal [Unknown]
  - Wheezing [Unknown]
